FAERS Safety Report 26129244 (Version 1)
Quarter: 2025Q4

REPORT INFORMATION
  Report Type: Spontaneous
  Country: US (occurrence: US)
  Receive Date: 20251208
  Receipt Date: 20251208
  Transmission Date: 20260117
  Serious: No
  Sender: LEO PHARM
  Company Number: US-LEO Pharma-384403

PATIENT
  Sex: Male

DRUGS (1)
  1. ADBRY [Suspect]
     Active Substance: TRALOKINUMAB-LDRM
     Indication: Eczema
     Dosage: HAS BEEN ON ADBRY ESTIMATING ABOUT A YEAR

REACTIONS (4)
  - Pruritus [Unknown]
  - Eczema [Unknown]
  - Drug effect less than expected [Unknown]
  - Pain [Unknown]
